FAERS Safety Report 15041855 (Version 2)
Quarter: 2018Q2

REPORT INFORMATION
  Report Type: Other
  Country: ES (occurrence: ES)
  Receive Date: 20180621
  Receipt Date: 20180629
  Transmission Date: 20180711
  Serious: Yes (Other)
  Sender: FDA-Public Use
  Company Number: ES-ASTELLAS-2018US027790

PATIENT
  Age: 65 Year
  Sex: Male

DRUGS (3)
  1. CISPLATIN. [Suspect]
     Active Substance: CISPLATIN
     Indication: LUNG ADENOCARCINOMA
     Dosage: UNK UNK, UNKNOWN FREQ. (FIRST-LINE TREATMENT, AT THE STANDARD DOSES)
     Route: 065
  2. PEMETREXED. [Suspect]
     Active Substance: PEMETREXED
     Indication: LUNG ADENOCARCINOMA
     Dosage: UNK UNK, UNKNOWN FREQ. (FIRST-LINE TREATMENT, AT THE STANDARD DOSES)
     Route: 065
  3. ERLOTINIB [Suspect]
     Active Substance: ERLOTINIB
     Indication: LUNG ADENOCARCINOMA
     Dosage: UNK, UNKNOWN FREQ.
     Route: 065
     Dates: start: 201106

REACTIONS (4)
  - EGFR gene mutation [Unknown]
  - Therapy partial responder [Unknown]
  - Drug resistance [Unknown]
  - Gene mutation [Unknown]
